FAERS Safety Report 6992251-7 (Version None)
Quarter: 2010Q3

REPORT INFORMATION
  Report Type: 
  Country: None (occurrence: None)
  Receive Date: 20100917
  Receipt Date: 20100915
  Transmission Date: 20110219
  Serious: Yes (Hospitalization)
  Sender: FDA-Public Use
  Company Number: US-BRISTOL-MYERS SQUIBB COMPANY-15258395

PATIENT
  Age: 80 Year
  Sex: Male
  Weight: 96 kg

DRUGS (4)
  1. ERBITUX [Suspect]
     Indication: OESOPHAGEAL ADENOCARCINOMA
     Dosage: 24AUG10:570MG RECEIVED 560 MG THIS COURSE.LAST DOSE ON 31AUG2010.
     Dates: start: 20100727
  2. CISPLATIN [Suspect]
     Indication: OESOPHAGEAL ADENOCARCINOMA
     Dosage: 24AUG10:55MG. DELAYED 8 DY DOSE REDUCED TO 45MG.LAST DOSE ON 08SEP2010
     Dates: start: 20100727
  3. TAXOL [Suspect]
     Indication: OESOPHAGEAL ADENOCARCINOMA
     Dosage: 24AUG10:115MG. DELAYED 8 DY RECEIVED 112MG THIS COURSE.DOSE REDUCED TO 90MG.LAST DOSE ON 08SEP2010
     Dates: start: 20100727
  4. RADIATION THERAPY [Suspect]
     Indication: OESOPHAGEAL ADENOCARCINOMA
     Dosage: 1 DF:3960 CGY, NO OF ELASPSED DAYS 45.LAST DOSE ON 09SEP2010 09SEP10:5040CGY
     Dates: start: 20100727

REACTIONS (5)
  - FEBRILE NEUTROPENIA [None]
  - HAEMOGLOBIN DECREASED [None]
  - NEUTROPHIL COUNT DECREASED [None]
  - PLATELET COUNT DECREASED [None]
  - WHITE BLOOD CELL COUNT DECREASED [None]
